FAERS Safety Report 8566328-9 (Version None)
Quarter: 2012Q3

REPORT INFORMATION
  Report Type: 
  Country: None (occurrence: None)
  Receive Date: 20120803
  Receipt Date: 20111221
  Transmission Date: 20120928
  Serious: No
  Sender: FDA-Public Use
  Company Number: US-ABBOTT-11P-163-0885798-00

PATIENT
  Sex: Male
  Weight: 63.56 kg

DRUGS (3)
  1. AFFIENT [Concomitant]
     Indication: ANTICOAGULANT THERAPY
  2. CRESTOR [Concomitant]
     Indication: ANTICOAGULANT THERAPY
  3. NIASPAN [Suspect]
     Indication: HIGH DENSITY LIPOPROTEIN DECREASED
     Dosage: AT BEDTIME
     Dates: start: 20111214

REACTIONS (4)
  - FLUSHING [None]
  - BLISTER [None]
  - INFLUENZA [None]
  - DRY SKIN [None]
